FAERS Safety Report 9891582 (Version 2)
Quarter: 2014Q1

REPORT INFORMATION
  Report Type: Spontaneous
  Country: DE (occurrence: DE)
  Receive Date: 20140212
  Receipt Date: 20140312
  Transmission Date: 20141002
  Serious: Yes (Death, Life-Threatening, Hospitalization)
  Sender: FDA-Public Use
  Company Number: PHHY2014DE016223

PATIENT
  Age: 68 Year
  Sex: Female

DRUGS (27)
  1. STALEVO [Suspect]
     Indication: PARKINSON^S DISEASE
     Dosage: 3 DF DAILY (200/100/25 MG (ENTACAPONE/ LEVODOPA,/CARBIDOPA))
     Dates: start: 201205
  2. STALEVO [Suspect]
     Dosage: 4 DF DAILY (200/100/25 MG (ENTACAPONE/ LEVODOPA,/CARBIDOPA))
     Dates: start: 2013, end: 20131020
  3. STALEVO [Suspect]
     Dosage: 6 DF DAILY (200/100/25 MG (ENTACAPONE/ LEVODOPA,/CARBIDOPA))
     Dates: start: 20131020, end: 201312
  4. STALEVO [Suspect]
     Dosage: 0.5 DF DAILY (200/100/25 MG (ENTACAPONE/ LEVODOPA,/CARBIDOPA))
  5. STALEVO [Suspect]
     Dosage: 3 DF DAILY (200/100/12.5MG (ENTACAPONE/ LEVODOPA,/CARBIDOPA))
     Dates: start: 201312
  6. LEVODOPA [Concomitant]
     Indication: PARKINSON^S DISEASE
     Dosage: 3 DF IN 1 DAY
  7. LEVODOPA [Concomitant]
     Dosage: 4 DF IN 1 DAY
  8. SIFROL [Concomitant]
     Indication: PARKINSON^S DISEASE
     Dosage: 3 DF IN 1 DAY
  9. SIFROL [Concomitant]
     Dosage: 4 DF IN 1 DAY
  10. SIFROL [Concomitant]
     Dosage: 1 DF IN 1 DAY
     Dates: start: 20131020, end: 20131210
  11. BIPERIDEN [Concomitant]
     Indication: PARKINSON^S DISEASE
     Dosage: 2 DF IN 1 DAY
     Dates: start: 1994
  12. BIPERIDEN [Concomitant]
     Dosage: 3 DF IN 1 DAY
     Dates: end: 20131020
  13. BIPERIDEN [Concomitant]
     Dosage: 1 DF IN 1 DAY
  14. SEROQUEL [Concomitant]
     Dosage: 1.5 DF IN AFETRNOON
  15. DOPADURA C [Concomitant]
     Indication: PARKINSON^S DISEASE
     Dosage: 1 DF, A DAY
     Dates: start: 1999, end: 201310
  16. DOPADURA C [Concomitant]
     Indication: PARKINSON^S DISEASE
     Dosage: 4 DF, UNK
  17. DOPADURA C [Concomitant]
     Dosage: 1 DF, A DAY (200/50)
  18. LEVODOPA COMP B [Concomitant]
     Indication: PARKINSON^S DISEASE
     Dosage: IN MORNINGS AND NIGHT
  19. PANTOZOL [Concomitant]
     Dosage: 1 DF, QD
  20. PANTOZOL [Concomitant]
     Dosage: 1 DF, QD (40MG)
  21. FEMARA [Concomitant]
     Dosage: 1 DF, QD
  22. LISINOPRIL [Concomitant]
     Dosage: 20 MG, QD
  23. METOPROLOL [Concomitant]
     Dosage: 100 MG, BID
  24. UNACID [Concomitant]
     Dosage: 2 DF, QD
  25. UNACID [Concomitant]
     Dosage: 375 MG, QID
  26. ALLOPURINOL [Concomitant]
     Dosage: 30 MG, QD
  27. AMPHO MORONAL [Concomitant]
     Dosage: 1 DF, QID (4 X 1 PIPETTE)

REACTIONS (7)
  - Myelodysplastic syndrome [Fatal]
  - Pneumonia [Unknown]
  - Immobile [Unknown]
  - Toxicity to various agents [Unknown]
  - Musculoskeletal stiffness [Unknown]
  - Drug prescribing error [Unknown]
  - Convulsion [Unknown]
